FAERS Safety Report 4865841-5 (Version None)
Quarter: 2005Q4

REPORT INFORMATION
  Report Type: 
  Country: None (occurrence: None)
  Receive Date: 20051220
  Receipt Date: 20051206
  Transmission Date: 20060501
  Serious: Yes (Hospitalization)
  Sender: FDA-Public Use
  Company Number: SUS1-2005-00907

PATIENT
  Age: 47 Year
  Sex: Female

DRUGS (4)
  1. PENTASA [Suspect]
     Indication: INFLAMMATORY BOWEL DISEASE
     Dosage: 4 G DAILY, ORAL
     Route: 048
     Dates: start: 20050707, end: 20050716
  2. CHLORMADINONE ACETATE TAB [Concomitant]
  3. MONTMORILLONITE (MONTMORILLONITE) [Concomitant]
  4. PROPRANOLOL HYDROCHLORIDE [Concomitant]

REACTIONS (20)
  - ARTHRALGIA [None]
  - ASTHENIA [None]
  - BLOOD ALKALINE PHOSPHATASE INCREASED [None]
  - BLOOD AMYLASE INCREASED [None]
  - BLOOD CREATININE INCREASED [None]
  - CHEST PAIN [None]
  - CHOLELITHIASIS [None]
  - COUGH [None]
  - CREPITATIONS [None]
  - DRUG INEFFECTIVE [None]
  - HEPATOMEGALY [None]
  - LIPASE INCREASED [None]
  - LUNG DISORDER [None]
  - PLEURAL EFFUSION [None]
  - PROTEINURIA [None]
  - PYREXIA [None]
  - RASH MACULAR [None]
  - RESPIRATORY DISORDER [None]
  - SEPSIS [None]
  - TACHYPNOEA [None]
